FAERS Safety Report 9095659 (Version 2)
Quarter: 2013Q1

REPORT INFORMATION
  Report Type: Spontaneous
  Country: US (occurrence: US)
  Receive Date: 20130219
  Receipt Date: 20130307
  Transmission Date: 20140127
  Serious: Yes (Other)
  Sender: FDA-Public Use
  Company Number: US-PFIZER INC-2013053701

PATIENT
  Age: 65 Year
  Sex: Female
  Weight: 84.81 kg

DRUGS (5)
  1. AZITHROMYCIN [Suspect]
     Indication: SINUSITIS
     Dosage: UNK
     Dates: start: 20130128, end: 20130201
  2. LYRICA [Concomitant]
     Indication: FIBROMYALGIA
     Dosage: UNK
  3. CELEBREX [Concomitant]
     Indication: ARTHRITIS
     Dosage: UNK
  4. DIFLUCAN [Concomitant]
     Indication: VULVOVAGINAL MYCOTIC INFECTION
     Dosage: UNK
  5. FLAGYL [Concomitant]
     Dosage: UNK

REACTIONS (2)
  - Coeliac disease [Unknown]
  - Paranasal sinus hypersecretion [Not Recovered/Not Resolved]
